FAERS Safety Report 5162897-X (Version None)
Quarter: 2006Q4

REPORT INFORMATION
  Report Type: 
  Country: None (occurrence: None)
  Receive Date: 20061201
  Receipt Date: 20060518
  Transmission Date: 20070319
  Serious: Yes (Other)
  Sender: FDA-Public Use
  Company Number: US-ROCHE-448801

PATIENT
  Age: 34 Year
  Sex: Male
  Weight: 102.1 kg

DRUGS (5)
  1. ACCUTANE [Suspect]
     Dosage: INDICATION FOR USE WAS ALSO FOR: FOLLICULITIS AND DISSECTING CELLULITIS, SCALP. TOTAL DAILLY DOSAGE+
     Route: 048
     Dates: start: 20031126
  2. ACCUTANE [Suspect]
     Dosage: THE DOSAGE WAS INCREASED TO 80 MG/DAILY.
     Route: 048
  3. ACCUTANE [Suspect]
     Route: 048
     Dates: end: 20040515
  4. NIZORAL [Concomitant]
     Indication: FOLLICULITIS
     Dosage: REPORTED AS 2% SHAMPOO.
     Route: 061
     Dates: start: 20040212
  5. KENALOG [Concomitant]
     Dosage: REPORTED AS 10 MG/ML SUSPENSION,  0.5 CC SUSPENSION INJECTION. PATIENT HAD 1 TO 7 LESIONS.  GIVEN V+
     Route: 026
     Dates: start: 20031126, end: 20031126

REACTIONS (10)
  - CLOSTRIDIAL INFECTION [None]
  - COLITIS [None]
  - COLITIS ULCERATIVE [None]
  - EMOTIONAL DISTRESS [None]
  - HEPATIC ENZYME INCREASED [None]
  - LIP DRY [None]
  - LIPIDS INCREASED [None]
  - NASAL DRYNESS [None]
  - SKIN EXFOLIATION [None]
  - SKIN PAPILLOMA [None]
